FAERS Safety Report 5529689-0 (Version None)
Quarter: 2007Q4

REPORT INFORMATION
  Report Type: 
  Country: None (occurrence: None)
  Receive Date: 20071129
  Receipt Date: 20071121
  Transmission Date: 20080405
  Serious: Yes (Other)
  Sender: FDA-Public Use
  Company Number: FR-PFIZER INC-2007098027

PATIENT
  Age: 52 Year
  Sex: Male

DRUGS (2)
  1. TAHOR [Suspect]
  2. FENOFIBRATE [Concomitant]

REACTIONS (1)
  - VERTIGO [None]
